FAERS Safety Report 8462494-4 (Version None)
Quarter: 2012Q2

REPORT INFORMATION
  Report Type: 
  Country: None (occurrence: None)
  Receive Date: 20120625
  Receipt Date: 20120613
  Transmission Date: 20120825
  Serious: Yes (Other)
  Sender: FDA-Public Use
  Company Number: JP-ASTRAZENECA-2012SE41408

PATIENT
  Age: 65 Year
  Sex: Female
  Weight: 38.5 kg

DRUGS (9)
  1. SEROQUEL [Suspect]
     Route: 048
     Dates: start: 20120416
  2. SLOWHEIM [Suspect]
     Route: 048
     Dates: start: 20120406, end: 20120411
  3. MAGNESIUM OXIDE [Concomitant]
  4. YOKUKAN-SAN [Suspect]
     Dates: start: 20120322, end: 20120409
  5. MEMANTINE HCL [Concomitant]
     Indication: DEMENTIA
     Dates: start: 20120213, end: 20120306
  6. MAGNESIUM OXIDE [Concomitant]
     Indication: CONSTIPATION
     Dates: start: 20120220, end: 20120411
  7. SEROQUEL [Suspect]
     Indication: DEMENTIA
     Route: 048
     Dates: start: 20120215, end: 20120321
  8. DOGMATYL [Suspect]
     Indication: DEMENTIA
     Route: 048
     Dates: start: 20120227, end: 20120411
  9. DOGMATYL [Suspect]
     Indication: DECREASED APPETITE
     Route: 048
     Dates: start: 20120227, end: 20120411

REACTIONS (2)
  - OFF LABEL USE [None]
  - HEPATIC FUNCTION ABNORMAL [None]
